FAERS Safety Report 14277426 (Version 1)
Quarter: 2017Q4

REPORT INFORMATION
  Report Type: Spontaneous
  Country: US (occurrence: US)
  Receive Date: 20171212
  Receipt Date: 20171212
  Transmission Date: 20180321
  Serious: Yes (Other)
  Sender: FDA-Public Use
  Company Number: US-ROCHE-2035991

PATIENT
  Age: 12 Year
  Sex: Female

DRUGS (1)
  1. OMALIZUMAB. [Suspect]
     Active Substance: OMALIZUMAB
     Indication: CHRONIC SPONTANEOUS URTICARIA
     Route: 065

REACTIONS (7)
  - Arthralgia [Recovered/Resolved]
  - Lymphadenopathy [Unknown]
  - Thrombocytopenia [Unknown]
  - Headache [Unknown]
  - Serum sickness-like reaction [Unknown]
  - Malaise [Recovered/Resolved]
  - Rash morbilliform [Unknown]
